FAERS Safety Report 6333710 (Version 2)
Quarter: 2022Q4

REPORT INFORMATION
  Report Type: Spontaneous
  Country: FR (occurrence: FR)
  Receive Date: 20070614
  Receipt Date: 20221111
  Transmission Date: 20230113
  Serious: Yes (Death, Life-Threatening, Hospitalization)
  Sender: FDA-Public Use
  Company Number: FR-PFIZER INC-2007046949

PATIENT
  Age: 74 Year
  Sex: Male

DRUGS (5)
  1. SOLU-MEDROL [Interacting]
     Active Substance: METHYLPREDNISOLONE SODIUM SUCCINATE
     Dosage: 40 MG, 3X/DAY
     Route: 042
     Dates: start: 200703, end: 20070329
  2. CIPROFLOXACIN HYDROCHLORIDE [Interacting]
     Active Substance: CIPROFLOXACIN HYDROCHLORIDE
     Indication: Upper respiratory tract infection
     Dosage: 1 G, 1X/DAY
     Route: 048
     Dates: start: 200703, end: 20070329
  3. FLUINDIONE [Interacting]
     Active Substance: FLUINDIONE
     Dosage: 10 MG, 1X/DAY
     Route: 048
     Dates: end: 20070329
  4. FUROSEMIDE [Interacting]
     Active Substance: FUROSEMIDE
     Indication: Essential hypertension
     Dosage: 80 MG, 1X/DAY
     Route: 048
     Dates: end: 20070329
  5. CEFTRIAXONE SODIUM [Interacting]
     Active Substance: CEFTRIAXONE SODIUM
     Indication: Infection
     Route: 042
     Dates: start: 200703, end: 20070329

REACTIONS (4)
  - Cerebral haemorrhage [Fatal]
  - Respiratory failure [Fatal]
  - International normalised ratio increased [Fatal]
  - Drug interaction [Fatal]

NARRATIVE: CASE EVENT DATE: 20070329
